FAERS Safety Report 13053597 (Version 1)
Quarter: 2016Q4

REPORT INFORMATION
  Report Type: Spontaneous
  Country: DE (occurrence: DE)
  Receive Date: 20161222
  Receipt Date: 20161222
  Transmission Date: 20170207
  Serious: Yes (Other)
  Sender: FDA-Public Use
  Company Number: DE-ASTRAZENECA-2016SF34545

PATIENT
  Age: 64 Year
  Sex: Male
  Weight: 118 kg

DRUGS (14)
  1. RAMIPRIL BETA [Suspect]
     Active Substance: RAMIPRIL
     Route: 048
     Dates: start: 2010, end: 20161120
  2. OPIPRAMOL-NEURAXPHARM [Suspect]
     Active Substance: OPIPRAMOL
     Dosage: 100.0MG UNKNOWN
     Route: 065
  3. AMLODIPIN [Suspect]
     Active Substance: AMLODIPINE BESYLATE
     Route: 065
     Dates: start: 201305, end: 20161120
  4. MAGNESIUM [Concomitant]
     Active Substance: MAGNESIUM
     Route: 065
  5. L-THYROXIN 75 HENNING [Suspect]
     Active Substance: LEVOTHYROXINE SODIUM
     Route: 065
     Dates: start: 2009
  6. TAMSULOSIN BASICS [Suspect]
     Active Substance: TAMSULOSIN
     Route: 065
     Dates: start: 201210
  7. NEPRESOL [Suspect]
     Active Substance: DIHYDRALAZINE SULFATE
     Route: 065
     Dates: start: 2009
  8. BAYOTENSIN AKUT [Concomitant]
     Active Substance: NITRENDIPINE
     Indication: HYPERTENSION
     Dosage: 5MG/1ML, 2-3 TIMES PER YEAR
     Route: 065
     Dates: start: 2014
  9. HYDROCHLOROTHIAZID [Suspect]
     Active Substance: HYDROCHLOROTHIAZIDE
     Dosage: NON AZ PRODUCT 12.5 MG, UNKNOWN
     Route: 065
     Dates: end: 20161120
  10. METOPROLOL. [Suspect]
     Active Substance: METOPROLOL
     Route: 048
     Dates: start: 2009, end: 201611
  11. PANTOPRAZOL NYC [Suspect]
     Active Substance: PANTOPRAZOLE SODIUM
     Route: 065
     Dates: start: 2009
  12. AMLODIPIN [Suspect]
     Active Substance: AMLODIPINE BESYLATE
     Route: 065
  13. ATORVASTATIN STADA [Suspect]
     Active Substance: ATORVASTATIN
     Dosage: 10.0MG UNKNOWN
     Route: 065
  14. ASPIRIN. [Concomitant]
     Active Substance: ASPIRIN
     Dosage: 100
     Route: 065

REACTIONS (40)
  - Respiratory distress [Unknown]
  - Nasal congestion [Unknown]
  - Dizziness [Unknown]
  - Sleep disorder [Unknown]
  - Headache [Unknown]
  - Oedema peripheral [Unknown]
  - Myalgia [Unknown]
  - Magnesium deficiency [Unknown]
  - Sexual dysfunction [Unknown]
  - Depression [Unknown]
  - Memory impairment [Unknown]
  - Conjunctivitis [Unknown]
  - Asthenia [Unknown]
  - Dry mouth [Unknown]
  - Abdominal pain [Unknown]
  - Gingival bleeding [Unknown]
  - Pruritus [Unknown]
  - Lacrimal disorder [Unknown]
  - Back pain [Unknown]
  - Abdominal pain upper [Unknown]
  - Dry eye [Unknown]
  - Hypoaesthesia [Unknown]
  - Nasal dryness [Unknown]
  - Micturition urgency [Unknown]
  - Balance disorder [Unknown]
  - Muscle spasms [Unknown]
  - Chest pain [Unknown]
  - Fatigue [Unknown]
  - Photophobia [Unknown]
  - Anxiety [Unknown]
  - Arthralgia [Unknown]
  - Visual impairment [Unknown]
  - Oedema [Unknown]
  - Nervousness [Unknown]
  - Dyspnoea [Unknown]
  - Vision blurred [Unknown]
  - Erectile dysfunction [Unknown]
  - Muscular weakness [Unknown]
  - Weight increased [Unknown]
  - Diarrhoea [Unknown]

NARRATIVE: CASE EVENT DATE: 2009
